FAERS Safety Report 9223611 (Version 1)
Quarter: 2013Q2

REPORT INFORMATION
  Report Type: Spontaneous
  Country: US (occurrence: US)
  Receive Date: 20130410
  Receipt Date: 20130410
  Transmission Date: 20140414
  Serious: Yes (Hospitalization, Other)
  Sender: FDA-Public Use
  Company Number: US-ELI_LILLY_AND_COMPANY-US201304000972

PATIENT
  Age: 50 Year
  Sex: Female
  Weight: 82.54 kg

DRUGS (2)
  1. HUMALOG LISPRO [Suspect]
     Dosage: UNK
     Route: 058
  2. INSULIN [Concomitant]

REACTIONS (7)
  - Cerebrovascular accident [Unknown]
  - Cerebrovascular accident [Unknown]
  - Blood glucose increased [Unknown]
  - Motor dysfunction [Not Recovered/Not Resolved]
  - Fall [Unknown]
  - Head injury [Unknown]
  - Blood glucose decreased [Unknown]
